FAERS Safety Report 5364461-6 (Version None)
Quarter: 2007Q2

REPORT INFORMATION
  Report Type: 
  Country: None (occurrence: None)
  Receive Date: 20070611
  Receipt Date: 20060925
  Transmission Date: 20071010
  Serious: Yes (Other)
  Sender: FDA-Public Use
  Company Number: USA-2006-0025699

PATIENT
  Age: 20 Year
  Sex: Male

DRUGS (1)
  1. OXYCODONE HCL [Suspect]
     Indication: BACK PAIN
     Dosage: 1 TABLET, Q8H,
     Dates: start: 20050101

REACTIONS (10)
  - BEREAVEMENT REACTION [None]
  - DRUG ABUSER [None]
  - DRUG DEPENDENCE [None]
  - DRUG WITHDRAWAL SYNDROME [None]
  - HOT FLUSH [None]
  - INTENTIONAL DRUG MISUSE [None]
  - OVERDOSE [None]
  - PAIN [None]
  - SEDATION [None]
  - TREMOR [None]
